FAERS Safety Report 7953038-1 (Version None)
Quarter: 2011Q4

REPORT INFORMATION
  Report Type: 
  Country: None (occurrence: None)
  Receive Date: 20111201
  Receipt Date: 20111128
  Transmission Date: 20120403
  Serious: Yes (Other)
  Sender: FDA-Public Use
  Company Number: US-ASTRAZENECA-2011SE72101

PATIENT
  Age: 37 Year
  Sex: Female

DRUGS (1)
  1. ZOLADEX [Suspect]
     Route: 058

REACTIONS (2)
  - ADVERSE EVENT [None]
  - ENDOMETRIOSIS [None]
